FAERS Safety Report 7320729-5 (Version None)
Quarter: 2011Q1

REPORT INFORMATION
  Report Type: 
  Country: None (occurrence: None)
  Receive Date: 20110228
  Receipt Date: 20110221
  Transmission Date: 20110831
  Serious: Yes (Death)
  Sender: FDA-Public Use
  Company Number: JP-ROCHE-749042

PATIENT
  Age: 13 Year
  Sex: Male

DRUGS (3)
  1. HORMONE NOS [Concomitant]
     Dosage: DOSAGE IS UNCERTAIN. DRUG NAME: ADRENAL HORMONE PREPARATIONS
     Route: 065
  2. CELLCEPT [Suspect]
     Indication: GRAFT VERSUS HOST DISEASE
     Route: 048
  3. TACROLIMUS [Concomitant]
     Indication: GRAFT VERSUS HOST DISEASE
     Dosage: DOSAGE IS UNCERTAIN.
     Route: 065

REACTIONS (1)
  - ACUTE MYELOID LEUKAEMIA RECURRENT [None]
